FAERS Safety Report 22620168 (Version 2)
Quarter: 2024Q3

REPORT INFORMATION
  Report Type: Spontaneous
  Country: TR (occurrence: TR)
  Receive Date: 20230620
  Receipt Date: 20240711
  Transmission Date: 20241016
  Serious: No
  Sender: PIERRE FABRE MEDICAMENT
  Company Number: TR-MLMSERVICE-20230410-4217951-1

PATIENT
  Age: 36 Year
  Sex: Male

DRUGS (12)
  1. PROPRANOLOL [Suspect]
     Active Substance: PROPRANOLOL HYDROCHLORIDE
     Indication: Product used for unknown indication
     Dosage: 40 MG/DAY
     Route: 065
     Dates: end: 2018
  2. CLONAZEPAM [Suspect]
     Active Substance: CLONAZEPAM
     Indication: Obsessive-compulsive disorder
     Dosage: 2 MG/DAY
     Route: 065
     Dates: start: 2018
  3. CLONAZEPAM [Suspect]
     Active Substance: CLONAZEPAM
     Indication: Anxiety
  4. CLOZAPINE [Suspect]
     Active Substance: CLOZAPINE
     Indication: Schizoaffective disorder
     Dosage: DOSE OF CLOZAPINE WAS REDUCED
     Route: 065
  5. CLOZAPINE [Suspect]
     Active Substance: CLOZAPINE
     Dosage: TITRATED TO 200 MG/DAY
     Route: 065
     Dates: start: 2016
  6. CLOZAPINE [Suspect]
     Active Substance: CLOZAPINE
     Dosage: TITRATED TO 200 MG/DAY
     Route: 065
     Dates: start: 2016
  7. CLOZAPINE [Suspect]
     Active Substance: CLOZAPINE
     Dosage: 300 MG/DAY
     Route: 065
     Dates: start: 201809
  8. CLOZAPINE [Suspect]
     Active Substance: CLOZAPINE
     Dosage: 600 MG/DAY
     Route: 065
     Dates: end: 201809
  9. BIPERIDEN [Concomitant]
     Active Substance: BIPERIDEN
     Indication: Muscle rigidity
     Dosage: 6 MG/DAY
     Route: 065
     Dates: start: 2018
  10. VALPROATE SODIUM [Concomitant]
     Active Substance: VALPROATE SODIUM
     Indication: Product used for unknown indication
     Dosage: 1000 MG/DAY
     Route: 065
  11. HALOPERIDOL [Concomitant]
     Active Substance: HALOPERIDOL
     Indication: Obsessive-compulsive disorder
     Dosage: INCREASED UP TO 30 MG/DAY
     Route: 048
     Dates: start: 2018
  12. HALOPERIDOL [Concomitant]
     Active Substance: HALOPERIDOL
     Indication: Schizoaffective disorder
     Dosage: 30 MG/DAY, INCREASED UPTO
     Route: 048
     Dates: start: 2018

REACTIONS (1)
  - Orthostatic hypotension [Recovered/Resolved]

NARRATIVE: CASE EVENT DATE: 20180101
